FAERS Safety Report 4593943-X (Version None)
Quarter: 2005Q1

REPORT INFORMATION
  Report Type: 
  Country: None (occurrence: None)
  Receive Date: 20050301
  Receipt Date: 20050222
  Transmission Date: 20050727
  Serious: Yes (Life-Threatening)
  Sender: FDA-Public Use
  Company Number: PL-MERCK-0502POL00008

PATIENT
  Age: 11 Year
  Sex: Male
  Weight: 33 kg

DRUGS (5)
  1. SINGULAIR [Suspect]
     Indication: ASTHMA
     Route: 048
     Dates: start: 20041007, end: 20041013
  2. SINGULAIR [Suspect]
     Indication: RHINITIS ALLERGIC
     Route: 048
     Dates: start: 20041007, end: 20041013
  3. BUDESONIDE [Concomitant]
     Indication: RHINITIS ALLERGIC
     Route: 055
     Dates: start: 20041007
  4. CETIRIZINE HYDROCHLORIDE [Concomitant]
     Indication: RESPIRATORY DISORDER
     Route: 048
     Dates: start: 20041007
  5. CETIRIZINE HYDROCHLORIDE [Concomitant]
     Indication: CONJUNCTIVITIS
     Route: 048
     Dates: start: 20041007

REACTIONS (5)
  - ANXIETY [None]
  - BALANCE DISORDER [None]
  - DYSPNOEA [None]
  - FACE OEDEMA [None]
  - OEDEMA PERIPHERAL [None]
